FAERS Safety Report 19196113 (Version 2)
Quarter: 2021Q2

REPORT INFORMATION
  Report Type: Spontaneous
  Country: FR (occurrence: FR)
  Receive Date: 20210429
  Receipt Date: 20210505
  Transmission Date: 20210717
  Serious: Yes (Hospitalization)
  Sender: FDA-Public Use
  Company Number: FR-JNJFOC-20210439800

PATIENT
  Age: 49 Year
  Sex: Male

DRUGS (5)
  1. LOXAPI [Suspect]
     Active Substance: LOXAPINE
     Indication: INTENTIONAL OVERDOSE
     Route: 048
     Dates: start: 202103, end: 202103
  2. XEPLION [Suspect]
     Active Substance: PALIPERIDONE PALMITATE
  3. DIAZEPAM. [Suspect]
     Active Substance: DIAZEPAM
     Indication: INTENTIONAL OVERDOSE
     Route: 048
     Dates: start: 202103, end: 202103
  4. XEPLION [Suspect]
     Active Substance: PALIPERIDONE PALMITATE
  5. XEPLION [Suspect]
     Active Substance: PALIPERIDONE PALMITATE
     Indication: SCHIZOPHRENIA
     Dosage: 150 MG/28 JRS
     Route: 030

REACTIONS (6)
  - Rhabdomyolysis [Recovering/Resolving]
  - Electrocardiogram QT prolonged [Recovering/Resolving]
  - Pneumonia aspiration [Recovering/Resolving]
  - Tachycardia [Recovered/Resolved]
  - Somnolence [Recovered/Resolved]
  - Poisoning deliberate [Recovered/Resolved]

NARRATIVE: CASE EVENT DATE: 202103
